FAERS Safety Report 9779863 (Version 1)
Quarter: 2013Q4

REPORT INFORMATION
  Report Type: Spontaneous
  Country: US (occurrence: US)
  Receive Date: 20131223
  Receipt Date: 20131223
  Transmission Date: 20140711
  Serious: Yes (Hospitalization, Other)
  Sender: FDA-Public Use
  Company Number: US-SA-2013SA131424

PATIENT
  Age: 44 Year
  Sex: Female

DRUGS (4)
  1. LUMIZYME [Suspect]
     Indication: GLYCOGEN STORAGE DISEASE TYPE II
     Route: 042
     Dates: start: 20100908
  2. DILAUDID [Concomitant]
     Indication: PREMEDICATION
     Dosage: PRIOR TO THE INFUSION
     Route: 030
  3. DILAUDID [Concomitant]
     Indication: PREMEDICATION
     Dosage: DURING THE INFUSION
     Route: 042
  4. ANALGESICS [Concomitant]
     Indication: PAIN

REACTIONS (2)
  - Appendicitis [Not Recovered/Not Resolved]
  - Staphylococcal infection [Unknown]
